FAERS Safety Report 7441776-9 (Version None)
Quarter: 2011Q2

REPORT INFORMATION
  Report Type: 
  Country: None (occurrence: None)
  Receive Date: 20110426
  Receipt Date: 20110426
  Transmission Date: 20111010
  Serious: Yes (Other)
  Sender: FDA-Public Use
  Company Number: None

PATIENT
  Age: 49 Year
  Sex: Female
  Weight: 72.7 kg

DRUGS (1)
  1. DEXTROAMPHETAMINE [Suspect]
     Indication: MAJOR DEPRESSION
     Dosage: 15MG 2 X IN AM DAILY MOUTH
     Route: 048
     Dates: start: 20110407, end: 20110411

REACTIONS (14)
  - CHEST PAIN [None]
  - HYPERVENTILATION [None]
  - CONSTIPATION [None]
  - HEADACHE [None]
  - FLUSHING [None]
  - FATIGUE [None]
  - MYDRIASIS [None]
  - TACHYPNOEA [None]
  - COUGH [None]
  - PARAESTHESIA [None]
  - HYPOAESTHESIA [None]
  - DIZZINESS [None]
  - INCREASED APPETITE [None]
  - VISION BLURRED [None]
